FAERS Safety Report 8522079-8 (Version None)
Quarter: 2012Q3

REPORT INFORMATION
  Report Type: 
  Country: None (occurrence: None)
  Receive Date: 20120719
  Receipt Date: 20120714
  Transmission Date: 20120928
  Serious: Yes (Death, Life-Threatening)
  Sender: FDA-Public Use
  Company Number: US-PFIZER INC-2012152507

PATIENT
  Sex: Male
  Weight: 43 kg

DRUGS (4)
  1. CORTEF [Concomitant]
     Indication: BLOOD CORTICOTROPHIN DECREASED
     Dosage: VIA GT
     Dates: start: 20061101
  2. DDAVP [Concomitant]
     Indication: DIABETES INSIPIDUS
     Dosage: VIA GT
     Dates: start: 20120301
  3. GENOTROPIN [Suspect]
     Indication: HYPOPITUITARISM
     Dosage: 1.2 MG, 6 DAYS/WEEK
     Route: 058
     Dates: start: 20040901, end: 20111229
  4. SYNTHROID [Concomitant]
     Indication: BLOOD THYROID STIMULATING HORMONE DECREASED
     Dosage: VIA GT
     Dates: start: 20061101

REACTIONS (3)
  - NEOPLASM RECURRENCE [None]
  - CRANIOPHARYNGIOMA [None]
  - VOLVULUS [None]
